FAERS Safety Report 25672686 (Version 1)
Quarter: 2025Q3

REPORT INFORMATION
  Report Type: Spontaneous
  Country: US (occurrence: US)
  Receive Date: 20250812
  Receipt Date: 20250812
  Transmission Date: 20251020
  Serious: No
  Sender: SANOFI AVENTIS
  Company Number: US-SA-SAC20240628000089

PATIENT
  Sex: Male
  Weight: 82 kg

DRUGS (24)
  1. DUPIXENT [Suspect]
     Active Substance: DUPILUMAB
     Indication: Dermatitis atopic
     Dosage: 300 MG QOW
     Route: 058
  2. VITAMIN D3 [Concomitant]
     Active Substance: CHOLECALCIFEROL
  3. CYANOCOBALAMIN [Concomitant]
     Active Substance: CYANOCOBALAMIN
  4. MELATONIN [Concomitant]
     Active Substance: MELATONIN
  5. COENZYME Q10 [Concomitant]
     Active Substance: DIETARY SUPPLEMENT\UBIDECARENONE
  6. CRESTOR [Concomitant]
     Active Substance: ROSUVASTATIN CALCIUM
  7. DABIGATRAN ETEXILATE [Concomitant]
     Active Substance: DABIGATRAN ETEXILATE
  8. DABIGATRAN ETEXILATE [Concomitant]
     Active Substance: DABIGATRAN ETEXILATE
  9. FLONASE ALLERGY RELIEF [Concomitant]
     Active Substance: FLUTICASONE PROPIONATE
  10. LISINOPRIL [Concomitant]
     Active Substance: LISINOPRIL
  11. LISINOPRIL [Concomitant]
     Active Substance: LISINOPRIL
  12. AMLODIPINE BESYLATE [Concomitant]
     Active Substance: AMLODIPINE BESYLATE
  13. AMLODIPINE BESYLATE [Concomitant]
     Active Substance: AMLODIPINE BESYLATE
  14. FINASTERIDE [Concomitant]
     Active Substance: FINASTERIDE
  15. FINASTERIDE [Concomitant]
     Active Substance: FINASTERIDE
  16. LEVOTHYROXINE SODIUM [Concomitant]
     Active Substance: LEVOTHYROXINE SODIUM
  17. FAMOTIDINE [Concomitant]
     Active Substance: FAMOTIDINE
  18. FAMOTIDINE [Concomitant]
     Active Substance: FAMOTIDINE
  19. MAGNESIUM [Concomitant]
     Active Substance: MAGNESIUM
  20. SYNTHROID [Concomitant]
     Active Substance: LEVOTHYROXINE SODIUM
  21. ROSUVASTATIN [Concomitant]
     Active Substance: ROSUVASTATIN
  22. FLUTICASONE PROPIONATE [Concomitant]
     Active Substance: FLUTICASONE PROPIONATE
  23. ONDANSETRON [Concomitant]
     Active Substance: ONDANSETRON
  24. TACROLIMUS [Concomitant]
     Active Substance: TACROLIMUS

REACTIONS (2)
  - Weight increased [Unknown]
  - Skin atrophy [Unknown]
